FAERS Safety Report 16376209 (Version 1)
Quarter: 2019Q2

REPORT INFORMATION
  Report Type: Report from Study
  Country: US (occurrence: US)
  Receive Date: 20190531
  Receipt Date: 20190531
  Transmission Date: 20190711
  Serious: Yes (Other)
  Sender: FDA-Public Use
  Company Number: US-ROCHE-2325233

PATIENT

DRUGS (4)
  1. IRINOTECAN [Suspect]
     Active Substance: IRINOTECAN
     Indication: GLIOBLASTOMA
     Route: 042
  2. LOMUSTINE. [Suspect]
     Active Substance: LOMUSTINE
     Indication: GLIOBLASTOMA
     Route: 065
  3. BEVACIZUMAB. [Suspect]
     Active Substance: BEVACIZUMAB
     Indication: GLIOBLASTOMA
     Route: 042
  4. TEMOZOLOMIDE. [Suspect]
     Active Substance: TEMOZOLOMIDE
     Indication: GLIOBLASTOMA
     Dosage: THE FIRST 5 DAYS OF EVERY 28-DAYS CYCLE
     Route: 065

REACTIONS (14)
  - Hypophosphataemia [Unknown]
  - Pulmonary embolism [Unknown]
  - Thrombocytopenia [Unknown]
  - Oedema [Unknown]
  - Hypertension [Unknown]
  - Deep vein thrombosis [Unknown]
  - Weight decreased [Unknown]
  - Leukopenia [Unknown]
  - Pneumonia [Unknown]
  - Cardiovascular disorder [Unknown]
  - Diverticular perforation [Unknown]
  - Proteinuria [Unknown]
  - Anaemia [Unknown]
  - Hepatic enzyme increased [Unknown]
